FAERS Safety Report 8525479-5 (Version None)
Quarter: 2012Q3

REPORT INFORMATION
  Report Type: 
  Country: None (occurrence: None)
  Receive Date: 20120720
  Receipt Date: 20120712
  Transmission Date: 20120928
  Serious: Yes (Other)
  Sender: FDA-Public Use
  Company Number: US-JNJFOC-20120707039

PATIENT
  Age: 40 Year
  Sex: Female

DRUGS (2)
  1. IRON SULPHATE [Concomitant]
     Route: 065
  2. REMICADE [Suspect]
     Indication: CROHN'S DISEASE
     Route: 042

REACTIONS (2)
  - LIVER DISORDER [None]
  - ANTINUCLEAR ANTIBODY INCREASED [None]
